FAERS Safety Report 4888197-0 (Version None)
Quarter: 2006Q1

REPORT INFORMATION
  Report Type: 
  Country: None (occurrence: None)
  Receive Date: 20060123
  Receipt Date: 20051208
  Transmission Date: 20060701
  Serious: Yes (Hospitalization)
  Sender: FDA-Public Use
  Company Number: FR-BRISTOL-MYERS SQUIBB COMPANY-13209903

PATIENT
  Age: 79 Year
  Sex: Female

DRUGS (19)
  1. AMIKLIN POWDER [Suspect]
     Dates: start: 20051108, end: 20051114
  2. TIENAM [Suspect]
     Dates: start: 20051108, end: 20051116
  3. VANCOMYCIN [Suspect]
     Indication: PNEUMONIA
     Dates: start: 20051108, end: 20051114
  4. MIDAZOLAM HCL [Suspect]
     Dates: start: 20051029, end: 20051114
  5. FENTANYL [Suspect]
     Dates: start: 20051029, end: 20051114
  6. NIMBEX [Suspect]
     Dates: start: 20051029, end: 20051113
  7. METHOTREXATE [Concomitant]
  8. CORTANCYL [Concomitant]
  9. DI-ANTALVIC [Concomitant]
  10. TENORMIN [Concomitant]
  11. FOSAMAX [Concomitant]
  12. SKENAN [Concomitant]
  13. DIFRAREL [Concomitant]
  14. MOPRAL [Concomitant]
  15. CARTREX [Concomitant]
  16. SPECIAFOLDINE [Concomitant]
  17. CALCIUM GLUCONATE [Concomitant]
  18. VITAMIN D3 [Concomitant]
  19. LOVENOX [Concomitant]
     Dosage: RESTARTED ON 30-NOV-2005 AND STOPPED ON 05-DEC-2005
     Dates: start: 20051105, end: 20051113

REACTIONS (1)
  - THROMBOCYTOPENIA [None]
